FAERS Safety Report 6546588-6 (Version None)
Quarter: 2010Q1

REPORT INFORMATION
  Report Type: 
  Country: None (occurrence: None)
  Receive Date: 20100119
  Receipt Date: 20100104
  Transmission Date: 20100710
  Serious: Yes (Hospitalization)
  Sender: FDA-Public Use
  Company Number: 2009AC000104

PATIENT
  Age: 79 Year
  Sex: Male

DRUGS (30)
  1. DIGOXIN [Suspect]
     Dosage: 0.25 MG; QD; PO
     Route: 048
  2. WARFARIN SODIUM [Concomitant]
  3. LORAZEPAM [Concomitant]
  4. TOPROL-XL [Concomitant]
  5. NASACORT AQ [Concomitant]
  6. TEMAZEPAM [Concomitant]
  7. ALPRAZOLAM [Concomitant]
  8. GLUCOVANCE [Concomitant]
  9. AMBIEN [Concomitant]
  10. LEVSIN [Concomitant]
  11. METFORMIN/GLYB [Concomitant]
  12. NIASPAN [Concomitant]
  13. METFORMIN HCL [Concomitant]
  14. JANUVIA [Concomitant]
  15. AMBIEN CR [Concomitant]
  16. METOPROLOL SUCCINATE EXTENDED RELEASE [Concomitant]
  17. OSMOPREP [Concomitant]
  18. CIPROFLOXACIN [Concomitant]
  19. PROMETHAZINE [Concomitant]
  20. HYOROCODONE-APAP [Concomitant]
  21. ZOLPIDEM [Concomitant]
  22. XANAX [Concomitant]
  23. LORAZEPAM [Concomitant]
  24. GLUCOVANCE [Concomitant]
  25. TOPROL-XL [Concomitant]
  26. WARFARIN SODIUM [Concomitant]
  27. GLIPIZIDE [Concomitant]
  28. GLUCOVANCE [Concomitant]
  29. WARFARIN SODIUM [Concomitant]
  30. TOPROL-XL [Concomitant]

REACTIONS (27)
  - ARRHYTHMIA [None]
  - ATRIAL FIBRILLATION [None]
  - BRADYCARDIA [None]
  - CARDIAC DISORDER [None]
  - CARDIAC MURMUR [None]
  - CARDIAC STRESS TEST ABNORMAL [None]
  - COLON ADENOMA [None]
  - DIABETES MELLITUS [None]
  - DILATATION ATRIAL [None]
  - DIPLOPIA [None]
  - DIZZINESS [None]
  - DYSPNOEA [None]
  - HYPERTENSION [None]
  - HYPOTENSION [None]
  - IMPAIRED DRIVING ABILITY [None]
  - INJURY [None]
  - INTERSTITIAL LUNG DISEASE [None]
  - LEFT VENTRICULAR DYSFUNCTION [None]
  - LEFT VENTRICULAR HYPERTROPHY [None]
  - MITRAL VALVE DISEASE [None]
  - NAUSEA [None]
  - NOCTURIA [None]
  - OSTEOARTHRITIS [None]
  - PULMONARY HYPERTENSION [None]
  - READING DISORDER [None]
  - VISION BLURRED [None]
  - VOMITING [None]
